FAERS Safety Report 8335615-1 (Version None)
Quarter: 2012Q2

REPORT INFORMATION
  Report Type: 
  Country: None (occurrence: None)
  Receive Date: 20120504
  Receipt Date: 20120425
  Transmission Date: 20120825
  Serious: Yes (Other)
  Sender: FDA-Public Use
  Company Number: US-BIOGENIDEC-2012BI014759

PATIENT
  Age: 49 Year
  Sex: Male

DRUGS (2)
  1. METHYLPREDNISOLONE ACETATE [Concomitant]
     Indication: MULTIPLE SCLEROSIS
  2. TYSABRI [Suspect]
     Indication: MULTIPLE SCLEROSIS
     Route: 042
     Dates: start: 20090716, end: 20110602

REACTIONS (5)
  - RENAL CANCER [None]
  - FATIGUE [None]
  - PAIN [None]
  - WHITE BLOOD CELL COUNT DECREASED [None]
  - ASTHENIA [None]
